FAERS Safety Report 25812578 (Version 1)
Quarter: 2025Q3

REPORT INFORMATION
  Report Type: Spontaneous
  Country: US (occurrence: US)
  Receive Date: 20250917
  Receipt Date: 20250917
  Transmission Date: 20251021
  Serious: Yes (Other)
  Sender: BAYER HEALTHCARE PHARMACEUTICALS INC.
  Company Number: US-BAYER-2025A119397

PATIENT
  Age: 59 Year
  Sex: Female
  Weight: 60.771 kg

DRUGS (14)
  1. ADEMPAS [Suspect]
     Active Substance: RIOCIGUAT
     Indication: Product used for unknown indication
  2. ADEMPAS [Suspect]
     Active Substance: RIOCIGUAT
     Indication: Product used for unknown indication
  3. TREPROSTINIL [Suspect]
     Active Substance: TREPROSTINIL
     Dosage: 0.060 ?G/KG, CONT
     Route: 041
  4. TREPROSTINIL [Suspect]
     Active Substance: TREPROSTINIL
     Route: 041
  5. TREPROSTINIL [Suspect]
     Active Substance: TREPROSTINIL
     Route: 041
  6. TREPROSTINIL [Suspect]
     Active Substance: TREPROSTINIL
     Route: 041
     Dates: start: 20220107
  7. AMBRISENTAN [Suspect]
     Active Substance: AMBRISENTAN
     Indication: Product used for unknown indication
     Dates: end: 2024
  8. VITAMIN C [Concomitant]
     Active Substance: ASCORBIC ACID
  9. LEVALBUTEROL TARTRATE [Concomitant]
     Active Substance: LEVALBUTEROL TARTRATE
  10. CRANBERRY [Concomitant]
     Active Substance: CRANBERRY
  11. VITAMIN D3 [Concomitant]
     Active Substance: CHOLECALCIFEROL
  12. POTASSIUM GLUCONATE [Concomitant]
     Active Substance: POTASSIUM GLUCONATE
  13. ZINC [Concomitant]
     Active Substance: ZINC
  14. ETHACRYNIC ACID [Concomitant]
     Active Substance: ETHACRYNIC ACID

REACTIONS (8)
  - Pulmonary arterial pressure increased [None]
  - Stress [None]
  - Migraine [None]
  - Oedema [None]
  - Vomiting [None]
  - Gastrooesophageal reflux disease [None]
  - Headache [None]
  - Blood pressure decreased [None]

NARRATIVE: CASE EVENT DATE: 20241101
